FAERS Safety Report 17792987 (Version 1)
Quarter: 2020Q2

REPORT INFORMATION
  Report Type: Spontaneous
  Country: JP (occurrence: JP)
  Receive Date: 20200515
  Receipt Date: 20200515
  Transmission Date: 20200714
  Serious: Yes (Death, Other)
  Sender: FDA-Public Use
  Company Number: JP-JAZZ-2020-JP-000483

PATIENT
  Age: 67 Year
  Sex: Male
  Weight: 60.8 kg

DRUGS (1)
  1. DEFITELIO [Suspect]
     Active Substance: DEFIBROTIDE SODIUM
     Indication: VENOOCCLUSIVE LIVER DISEASE
     Dosage: 25 MILLIGRAM/KILOGRAM, QD
     Route: 042
     Dates: start: 20200108, end: 20200109

REACTIONS (3)
  - Renal impairment [Fatal]
  - Venoocclusive liver disease [Fatal]
  - Off label use [Unknown]

NARRATIVE: CASE EVENT DATE: 20200108
